FAERS Safety Report 12249248 (Version 1)
Quarter: 2016Q2

REPORT INFORMATION
  Report Type: Spontaneous
  Country: US (occurrence: None)
  Receive Date: 20160407
  Receipt Date: 20160407
  Transmission Date: 20160815
  Serious: Yes (Hospitalization)
  Sender: FDA-Public Use
  Company Number: None

PATIENT
  Age: 62 Year
  Sex: Male
  Weight: 83 kg

DRUGS (1)
  1. BEVACIZUMAB (RHUMAB VEGF) [Suspect]
     Active Substance: BEVACIZUMAB
     Dates: end: 20160322

REACTIONS (7)
  - Malaise [None]
  - Unresponsive to stimuli [None]
  - Peripheral swelling [None]
  - Fall [None]
  - Urine odour abnormal [None]
  - Seizure [None]
  - Glioblastoma [None]

NARRATIVE: CASE EVENT DATE: 20160322
